FAERS Safety Report 9764613 (Version 1)
Quarter: 2013Q4

REPORT INFORMATION
  Report Type: Spontaneous
  Country: US (occurrence: US)
  Receive Date: 20131217
  Receipt Date: 20131217
  Transmission Date: 20140711
  Serious: Yes (Other)
  Sender: FDA-Public Use
  Company Number: US-RB-060949-13

PATIENT
  Age: 76 Year
  Sex: Male

DRUGS (2)
  1. DELSYM ADULT ORANGE [Suspect]
     Indication: PRODUCT USED FOR UNKNOWN INDICATION
     Dosage: PATIENT LAST TOOK DRUG ON 09-DEC-2013
     Route: 048
     Dates: start: 20131209
  2. ANTIBIOTICS [Concomitant]
     Indication: PRODUCT USED FOR UNKNOWN INDICATION

REACTIONS (2)
  - Depression [Recovered/Resolved]
  - Mood altered [Recovered/Resolved]
